FAERS Safety Report 6827449-1 (Version None)
Quarter: 2010Q3

REPORT INFORMATION
  Report Type: 
  Country: None (occurrence: None)
  Receive Date: 20100709
  Receipt Date: 20070111
  Transmission Date: 20110219
  Serious: No
  Sender: FDA-Public Use
  Company Number: US-PFIZER INC-2007004456

PATIENT
  Sex: Female
  Weight: 68.04 kg

DRUGS (5)
  1. CHANTIX [Suspect]
     Indication: SMOKING CESSATION THERAPY
     Dates: start: 20070101
  2. VIVELLE [Concomitant]
     Route: 061
  3. XANAX [Concomitant]
  4. HYDROCHLOROTHIAZIDE [Concomitant]
     Indication: FLUID RETENTION
  5. FLEXERIL [Concomitant]

REACTIONS (3)
  - COUGH [None]
  - INSOMNIA [None]
  - RESTLESSNESS [None]
